FAERS Safety Report 8495199 (Version 3)
Quarter: 2012Q4

REPORT INFORMATION
  Report Type: 
  Country: US (occurrence: US)
  Receive Date: 20120405
  Receipt Date: 20121101
  Transmission Date: 20130627
  Serious: Yes (Other)
  Sender: FDA-Public Use
  Company Number: US-PFIZER INC-2012081264

PATIENT
  Age: 56 Year
  Sex: Male
  Weight: 78.01 kg

DRUGS (5)
  1. NEURONTIN [Suspect]
  2. VIAGRA [Suspect]
     Indication: ERECTILE DYSFUNCTION
     Dosage: 50 mg, as needed
     Route: 048
  3. VIAGRA [Suspect]
     Dosage: 100 mg, as needed
     Route: 048
  4. VIAGRA [Suspect]
     Dosage: 150 mg (100mg+50mg), as needed
     Route: 048
     Dates: end: 2009
  5. KLONOPIN [Concomitant]
     Indication: ANXIETY
     Dosage: UNK

REACTIONS (5)
  - Surgery [Unknown]
  - Gallbladder disorder [Unknown]
  - Asthenia [Unknown]
  - Drug effect incomplete [Unknown]
  - Pain [Unknown]
